FAERS Safety Report 7759646-5 (Version None)
Quarter: 2011Q3

REPORT INFORMATION
  Report Type: 
  Country: None (occurrence: None)
  Receive Date: 20110919
  Receipt Date: 20110915
  Transmission Date: 20111222
  Serious: Yes (Other)
  Sender: FDA-Public Use
  Company Number: PT-ROCHE-802866

PATIENT
  Age: 49 Year
  Sex: Female

DRUGS (2)
  1. OXALIPLATIN [Concomitant]
     Indication: COLON CANCER
  2. XELODA [Suspect]
     Indication: COLON CANCER
     Dosage: FILM COATED TABLET
     Route: 065

REACTIONS (2)
  - HAEMOLYTIC ANAEMIA [None]
  - BLOOD BILIRUBIN INCREASED [None]
